FAERS Safety Report 24285405 (Version 1)
Quarter: 2024Q3

REPORT INFORMATION
  Report Type: Report from Study
  Country: US (occurrence: US)
  Receive Date: 20240905
  Receipt Date: 20240905
  Transmission Date: 20241017
  Serious: Yes (Other)
  Sender: GILEAD
  Company Number: US-GILEAD-2024-0686176

PATIENT
  Age: 71 Year
  Sex: Female

DRUGS (1)
  1. SOFOSBUVIR\VELPATASVIR [Suspect]
     Active Substance: SOFOSBUVIR\VELPATASVIR
     Indication: Hepatitis C
     Dosage: 1 DOSAGE FORM, QD
     Route: 048
     Dates: start: 20240621, end: 20240903

REACTIONS (1)
  - Terminal state [Unknown]

NARRATIVE: CASE EVENT DATE: 20240903
